FAERS Safety Report 21677660 (Version 1)
Quarter: 2022Q4

REPORT INFORMATION
  Report Type: Report from Study
  Country: US (occurrence: US)
  Receive Date: 20221203
  Receipt Date: 20221203
  Transmission Date: 20230112
  Serious: No
  Sender: FDA-Public Use
  Company Number: US-ABBVIE-4180531

PATIENT
  Sex: Male

DRUGS (4)
  1. HUMIRA [Suspect]
     Active Substance: ADALIMUMAB
     Indication: Ankylosing spondylitis
     Dosage: CITRATE FREE
     Route: 058
  2. Pfizer/BioNTech [Concomitant]
     Indication: COVID-19 immunisation
     Dosage: 1ST DOSE?FREQUENCY 1 IN ONCE
     Route: 030
     Dates: start: 20210416, end: 20210416
  3. Pfizer/BioNTech [Concomitant]
     Indication: COVID-19 immunisation
     Dosage: 2ND DOSE?FREQUENCY 1 IN ONCE
     Route: 030
     Dates: start: 20210507, end: 20210507
  4. Pfizer/BioNTech [Concomitant]
     Indication: COVID-19 immunisation
     Dosage: COVID BOOSTER?FREQUENCY 1 IN ONCE
     Dates: start: 20211106, end: 20211106

REACTIONS (1)
  - Weight increased [Not Recovered/Not Resolved]
